FAERS Safety Report 6426736-9 (Version None)
Quarter: 2009Q4

REPORT INFORMATION
  Report Type: 
  Country: None (occurrence: None)
  Receive Date: 20091027
  Receipt Date: 20091014
  Transmission Date: 20100525
  Serious: Yes (Other)
  Sender: FDA-Public Use
  Company Number: B0599243A

PATIENT
  Age: 8 Year

DRUGS (1)
  1. ONDANSETRON HYDROCHLORIDE [Suspect]
     Dosage: 2 MG; INTRAVENOUS
     Route: 042

REACTIONS (4)
  - APNOEA [None]
  - HEART RATE INCREASED [None]
  - LOSS OF CONSCIOUSNESS [None]
  - SINUS BRADYCARDIA [None]
